FAERS Safety Report 4821793-5 (Version None)
Quarter: 2005Q4

REPORT INFORMATION
  Report Type: 
  Country: None (occurrence: None)
  Receive Date: 20051103
  Receipt Date: 20050523
  Transmission Date: 20060501
  Serious: Yes (Hospitalization)
  Sender: FDA-Public Use
  Company Number: CHPA2005US05259

PATIENT
  Age: 80 Year
  Sex: Female
  Weight: 41.7 kg

DRUGS (5)
  1. PRIVATE       LABEL STEP 2 [Suspect]
     Indication: SMOKING CESSATION THERAPY
     Dosage: 14 MG, TRANSDERMAL
     Route: 062
     Dates: start: 20050101
  2. WALMART/EQUATE STEP 3 [Suspect]
     Indication: SMOKING CESSATION THERAPY
     Dosage: 7 MG, TRANSDERMAL
     Route: 062
     Dates: start: 20050101
  3. NICODERM [Suspect]
     Indication: SMOKING CESSATION THERAPY
     Dates: start: 20050101
  4. CLONAZEPAM [Concomitant]
  5. LORAZEPAM [Concomitant]

REACTIONS (7)
  - AMNESIA [None]
  - APPLICATION SITE ERYTHEMA [None]
  - APPLICATION SITE PRURITUS [None]
  - DERMATITIS CONTACT [None]
  - NICOTINE DEPENDENCE [None]
  - PNEUMONIA [None]
  - WRONG TECHNIQUE IN DRUG USAGE PROCESS [None]
